FAERS Safety Report 19187886 (Version 2)
Quarter: 2022Q2

REPORT INFORMATION
  Report Type: Report from Study
  Country: CA (occurrence: CA)
  Receive Date: 20210428
  Receipt Date: 20220404
  Transmission Date: 20220720
  Serious: Yes (Other)
  Sender: FDA-Public Use
  Company Number: CA-AMGEN-CANSL2021062416

PATIENT
  Age: 87 Year
  Sex: Male

DRUGS (3)
  1. ENBREL [Suspect]
     Active Substance: ETANERCEPT
     Indication: Psoriatic arthropathy
     Dosage: 50 MILLIGRAM, QWK
     Route: 058
  2. COVID-19 VACCINE NOS [Suspect]
     Active Substance: COVID-19 VACCINE NOS
     Indication: Product used for unknown indication
     Dosage: UNK
     Route: 065
  3. COVID-19 VACCINE NOS [Suspect]
     Active Substance: COVID-19 VACCINE NOS
     Dosage: 0.5 MILLIGRAM
     Route: 065

REACTIONS (7)
  - Cardiac failure congestive [Unknown]
  - Pulmonary oedema [Unknown]
  - Dementia [Unknown]
  - Liver disorder [Unknown]
  - Urinary tract infection [Unknown]
  - Renal disorder [Unknown]
  - Illness [Unknown]
